FAERS Safety Report 16385239 (Version 2)
Quarter: 2019Q2

REPORT INFORMATION
  Report Type: Spontaneous
  Country: DE (occurrence: DE)
  Receive Date: 20190603
  Receipt Date: 20190607
  Transmission Date: 20190711
  Serious: Yes (Life-Threatening, Hospitalization)
  Sender: FDA-Public Use
  Company Number: DE-009507513-1906DEU000499

PATIENT
  Age: 51 Year
  Sex: Female

DRUGS (4)
  1. LAMICTAL [Suspect]
     Active Substance: LAMOTRIGINE
     Indication: SEIZURE
     Dosage: UNK
     Route: 048
     Dates: start: 20031015
  2. TEMODAL [Suspect]
     Active Substance: TEMOZOLOMIDE
     Indication: GLIOBLASTOMA
     Dosage: 120MG PER DAY
     Route: 048
     Dates: start: 20031107
  3. FORTECORTIN [Suspect]
     Active Substance: DEXAMETHASONE
     Indication: PROPHYLAXIS
     Dosage: 2MG FOUR TIMES PER DAY
     Route: 048
     Dates: start: 20031105
  4. PANTOZOL [Suspect]
     Active Substance: PANTOPRAZOLE SODIUM
     Indication: PROPHYLAXIS
     Dosage: 20MG IN THE MORNING
     Route: 048
     Dates: start: 20031105

REACTIONS (8)
  - Blister [Unknown]
  - Oral mucosa erosion [Unknown]
  - Stevens-Johnson syndrome [Unknown]
  - Malaise [Unknown]
  - Macule [Unknown]
  - Nikolsky^s sign [Unknown]
  - Lip erosion [Unknown]
  - Toxic epidermal necrolysis [Unknown]

NARRATIVE: CASE EVENT DATE: 20031108
